FAERS Safety Report 8193530 (Version 3)
Quarter: 2013Q1

REPORT INFORMATION
  Report Type: Report from Study
  Country: US (occurrence: US)
  Receive Date: 20111021
  Receipt Date: 20130206
  Transmission Date: 20140127
  Serious: Yes (Hospitalization)
  Sender: FDA-Public Use
  Company Number: PHHO2011US17264

PATIENT
  Age: 68 Year
  Sex: Male
  Weight: 57.5 kg

DRUGS (8)
  1. CERTICAN [Suspect]
     Indication: RENAL TRANSPLANT
     Dosage: 0.75 MG, BID
     Route: 048
     Dates: start: 20110825, end: 20110831
  2. CERTICAN [Suspect]
     Dosage: 1.5 MG, BID
     Route: 048
     Dates: start: 20110901, end: 20111005
  3. CERTICAN [Suspect]
     Dosage: 1 MG, BID
     Route: 048
     Dates: start: 20111006
  4. FLOMAX ^BOEHRINGER INGELHEIM^ [Suspect]
     Indication: BENIGN PROSTATIC HYPERPLASIA
     Dosage: 0.4 MG, DAILY
     Dates: start: 20110909, end: 20111005
  5. PROGRAF [Concomitant]
     Indication: IMMUNOSUPPRESSION
     Dosage: 1 MG, BID
     Route: 048
     Dates: start: 20110828
  6. DAPSONE [Concomitant]
     Indication: PROPHYLAXIS
     Dosage: 100 MG, QD
     Route: 048
     Dates: start: 20110829
  7. VALCYTE [Concomitant]
     Indication: PROPHYLAXIS
     Dosage: 450 MG, UNK
     Dates: start: 20110826
  8. PREDNISONE [Concomitant]
     Indication: IMMUNOSUPPRESSION
     Dosage: 5 MG, UNK
     Route: 048
     Dates: start: 20110830

REACTIONS (1)
  - Coronary artery disease [Recovered/Resolved]
